FAERS Safety Report 12242303 (Version 1)
Quarter: 2016Q2

REPORT INFORMATION
  Report Type: Spontaneous
  Country: ES (occurrence: ES)
  Receive Date: 20160406
  Receipt Date: 20160406
  Transmission Date: 20160815
  Serious: Yes (Other)
  Sender: FDA-Public Use
  Company Number: ES-JNJFOC-20160328927

PATIENT
  Age: 83 Year
  Sex: Male

DRUGS (1)
  1. RISPERDAL [Suspect]
     Active Substance: RISPERIDONE
     Indication: COGNITIVE DISORDER
     Route: 048
     Dates: start: 20151005, end: 20160101

REACTIONS (5)
  - Oedema [Unknown]
  - Hyperbilirubinaemia [Unknown]
  - Off label use [Unknown]
  - Product use issue [Unknown]
  - Delirium [Unknown]

NARRATIVE: CASE EVENT DATE: 2015
